FAERS Safety Report 10673668 (Version 1)
Quarter: 2014Q4

REPORT INFORMATION
  Report Type: Spontaneous
  Country: NL (occurrence: None)
  Receive Date: 20141222
  Receipt Date: 20141222
  Transmission Date: 20150529
  Serious: Yes (Hospitalization)
  Sender: FDA-Public Use
  Company Number: NSR_01732_2014

PATIENT
  Age: 46 Year
  Sex: Female

DRUGS (4)
  1. BACLOFEN (BACLOFEN) [Suspect]
     Active Substance: BACLOFEN
     Indication: ALCOHOL WITHDRAWAL SYNDROME
     Dosage: 70 TABLETS OF 10 MG (NOT PRESCRIBED AMOUNT)), (10 MG TID)
  2. CLOMIPRAMINE [Concomitant]
     Active Substance: CLOMIPRAMINE
  3. OXAZEPAM. [Concomitant]
     Active Substance: OXAZEPAM
  4. BACLOFEN (BACLOFEN) [Suspect]
     Active Substance: BACLOFEN
     Indication: ALCOHOL ABUSE
     Dosage: 70 TABLETS OF 10 MG (NOT PRESCRIBED AMOUNT)), (10 MG TID)

REACTIONS (14)
  - Restlessness [None]
  - Hypothermia [None]
  - Hypokalaemia [None]
  - Hallucination, auditory [None]
  - Depressed level of consciousness [None]
  - Mydriasis [None]
  - Respiratory failure [None]
  - Hyperhidrosis [None]
  - Toxicity to various agents [None]
  - Vomiting [None]
  - Disturbance in attention [None]
  - Hyponatraemia [None]
  - Overdose [None]
  - Nausea [None]
